FAERS Safety Report 12465872 (Version 2)
Quarter: 2016Q3

REPORT INFORMATION
  Report Type: Report from Study
  Country: US (occurrence: US)
  Receive Date: 20160614
  Receipt Date: 20160708
  Transmission Date: 20161109
  Serious: Yes (Death, Hospitalization)
  Sender: FDA-Public Use
  Company Number: US-ACTELION-A-US2016-137307

PATIENT
  Age: 56 Year
  Sex: Female

DRUGS (1)
  1. OPSUMIT [Suspect]
     Active Substance: MACITENTAN
     Indication: PULMONARY ARTERIAL HYPERTENSION
     Dosage: 10 MG, QD
     Route: 048
     Dates: start: 20151215

REACTIONS (7)
  - Wheezing [Unknown]
  - Dyspnoea [Unknown]
  - Fluid retention [Unknown]
  - Death [Fatal]
  - Abdominal distension [Unknown]
  - Dialysis [Unknown]
  - Cough [Unknown]
